FAERS Safety Report 9380274 (Version 1)
Quarter: 2013Q3

REPORT INFORMATION
  Report Type: Spontaneous
  Country: US (occurrence: None)
  Receive Date: 20130701
  Receipt Date: 20130701
  Transmission Date: 20140515
  Serious: Yes (Other)
  Sender: FDA-Public Use
  Company Number: None

PATIENT
  Sex: Female

DRUGS (1)
  1. OXYMETAZOLINE [Suspect]
     Dosage: 2-3 SPRAYS, EVERY 10-12 HOUR, NASAL
     Route: 045
     Dates: start: 20130506

REACTIONS (4)
  - Eye irritation [None]
  - Sinusitis [None]
  - Blister [None]
  - Lacrimation increased [None]
